FAERS Safety Report 8035786-0 (Version None)
Quarter: 2012Q1

REPORT INFORMATION
  Report Type: 
  Country: None (occurrence: None)
  Receive Date: 20120106
  Receipt Date: 20120103
  Transmission Date: 20120608
  Serious: Yes (Hospitalization, Other)
  Sender: FDA-Public Use
  Company Number: 2010SP044933

PATIENT
  Age: 31 Year
  Sex: Female
  Weight: 110 kg

DRUGS (1)
  1. NUVARING [Suspect]
     Indication: CONTRACEPTION
     Dates: start: 20060401, end: 20060701

REACTIONS (11)
  - PULMONARY EMBOLISM [None]
  - ATELECTASIS [None]
  - BLOOD PRESSURE INCREASED [None]
  - DERMATITIS [None]
  - HEADACHE [None]
  - SINUSITIS [None]
  - MATERNAL EXPOSURE BEFORE PREGNANCY [None]
  - LOBAR PNEUMONIA [None]
  - MIGRAINE [None]
  - PHOTOPHOBIA [None]
  - ANAEMIA [None]
